FAERS Safety Report 7075734-3 (Version None)
Quarter: 2010Q4

REPORT INFORMATION
  Report Type: 
  Country: None (occurrence: None)
  Receive Date: 20101101
  Receipt Date: 20101020
  Transmission Date: 20110411
  Serious: Yes (Other)
  Sender: FDA-Public Use
  Company Number: US-BIOGENIDEC-2010BI036648

PATIENT
  Age: 35 Year
  Sex: Female
  Weight: 79 kg

DRUGS (2)
  1. TYSABRI [Suspect]
     Indication: MULTIPLE SCLEROSIS
     Route: 042
     Dates: start: 20100428
  2. VITAMIN B COMPLEX CAP [Concomitant]
     Indication: FATIGUE
     Dates: start: 20070101

REACTIONS (2)
  - DIZZINESS [None]
  - PRECANCEROUS CELLS PRESENT [None]
